FAERS Safety Report 7328959-3 (Version None)
Quarter: 2011Q1

REPORT INFORMATION
  Report Type: 
  Country: None (occurrence: None)
  Receive Date: 20110218
  Receipt Date: 20110202
  Transmission Date: 20110831
  Serious: Yes (Hospitalization)
  Sender: FDA-Public Use
  Company Number: 2010AR0069

PATIENT
  Age: 2 Year
  Sex: Male

DRUGS (1)
  1. ORFADIN [Suspect]
     Indication: TYROSINAEMIA
     Dosage: 1,5 MG/KG (1,5 MG/KG, 1 IN 1 D)
     Dates: start: 20100415

REACTIONS (2)
  - LIVER TRANSPLANT [None]
  - HEPATIC NEOPLASM MALIGNANT [None]
